FAERS Safety Report 9634925 (Version 1)
Quarter: 2013Q4

REPORT INFORMATION
  Report Type: Spontaneous
  Country: US (occurrence: US)
  Receive Date: 20131021
  Receipt Date: 20131021
  Transmission Date: 20140711
  Serious: No
  Sender: FDA-Public Use
  Company Number: US-BAYER-2013-127144

PATIENT
  Age: 70 Year
  Sex: Female
  Weight: 62.13 kg

DRUGS (4)
  1. ALEVE TABLET [Suspect]
     Indication: BACK PAIN
     Dosage: 1 DF, PRN
     Route: 048
     Dates: start: 201310
  2. VITAMIN C [Concomitant]
  3. FISH OIL [Concomitant]
  4. CALCIUM WITH VITAMIN D [Concomitant]

REACTIONS (3)
  - Dizziness [Recovered/Resolved]
  - Tinnitus [Recovered/Resolved]
  - Drug ineffective [None]
